FAERS Safety Report 26157560 (Version 1)
Quarter: 2025Q4

REPORT INFORMATION
  Report Type: Spontaneous
  Country: JP (occurrence: JP)
  Receive Date: 20251215
  Receipt Date: 20251215
  Transmission Date: 20260117
  Serious: Yes (Hospitalization)
  Sender: MERCK SHARP & DOHME LLC
  Company Number: JP-009507513-2358420

PATIENT
  Age: 65 Year
  Sex: Female
  Weight: 47 kg

DRUGS (3)
  1. KEYTRUDA [Suspect]
     Active Substance: PEMBROLIZUMAB
     Indication: Lung adenocarcinoma
     Route: 041
     Dates: start: 20240618, end: 20241202
  2. Abraxane I.V.Infusion 100mg [Concomitant]
     Route: 041
     Dates: start: 20250107, end: 20250305
  3. CARBOPLATIN [Concomitant]
     Active Substance: CARBOPLATIN
     Route: 041
     Dates: start: 20250107, end: 20250219

REACTIONS (1)
  - Immune-mediated hepatic disorder [Recovered/Resolved]

NARRATIVE: CASE EVENT DATE: 20250317
